FAERS Safety Report 9922763 (Version 1)
Quarter: 2014Q1

REPORT INFORMATION
  Report Type: Spontaneous
  Country: SE (occurrence: SE)
  Receive Date: 20140225
  Receipt Date: 20140225
  Transmission Date: 20141002
  Serious: Yes (Hospitalization, Other)
  Sender: FDA-Public Use
  Company Number: SE-WATSON-2014-02970

PATIENT
  Age: 38 Year
  Sex: Female

DRUGS (2)
  1. ANTABUS [Suspect]
     Indication: PRODUCT USED FOR UNKNOWN INDICATION
     Dosage: 400 MG, 3/WEEK; ON MONDAY, WEDNESDAY, FRIDAY
     Route: 065
     Dates: start: 20130802, end: 20130910
  2. ALVEDON [Concomitant]
     Indication: PRODUCT USED FOR UNKNOWN INDICATION
     Dosage: UNK
     Route: 065

REACTIONS (1)
  - Acute hepatic failure [Not Recovered/Not Resolved]
